FAERS Safety Report 5878067-3 (Version None)
Quarter: 2008Q3

REPORT INFORMATION
  Report Type: 
  Country: None (occurrence: None)
  Receive Date: 20080911
  Receipt Date: 20080905
  Transmission Date: 20090109
  Serious: Yes (Disabling)
  Sender: FDA-Public Use
  Company Number: IT-ABBOTT-08P-083-0474773-00

PATIENT
  Sex: Male

DRUGS (1)
  1. FULCROSUPRA [Suspect]
     Indication: HYPERCHOLESTEROLAEMIA
     Route: 048
     Dates: start: 20080601, end: 20080817

REACTIONS (6)
  - ERYTHEMA [None]
  - MUSCLE SPASMS [None]
  - MUSCULOSKELETAL STIFFNESS [None]
  - MYALGIA [None]
  - RASH MACULAR [None]
  - SWELLING FACE [None]
